FAERS Safety Report 7586473-4 (Version None)
Quarter: 2011Q2

REPORT INFORMATION
  Report Type: 
  Country: None (occurrence: None)
  Receive Date: 20110630
  Receipt Date: 20110630
  Transmission Date: 20111010
  Serious: Yes (Hospitalization)
  Sender: FDA-Public Use
  Company Number: None

PATIENT
  Sex: Female
  Weight: 96.1626 kg

DRUGS (2)
  1. PRADAXA [Suspect]
     Indication: PRURITUS
     Dosage: 150MG. 2X ORAL
     Route: 048
     Dates: start: 20110308, end: 20110312
  2. PRADAXA [Suspect]
     Indication: RASH GENERALISED
     Dosage: 150MG. 2X ORAL
     Route: 048
     Dates: start: 20110308, end: 20110312

REACTIONS (2)
  - PRURITUS [None]
  - RASH [None]
